FAERS Safety Report 25886563 (Version 2)
Quarter: 2025Q4

REPORT INFORMATION
  Report Type: Spontaneous
  Country: US (occurrence: US)
  Receive Date: 20251006
  Receipt Date: 20251121
  Transmission Date: 20260118
  Serious: No
  Sender: GILEAD
  Company Number: US-GILEAD-2025-0730379

PATIENT
  Age: 51 Year
  Sex: Male

DRUGS (3)
  1. YEZTUGO [Suspect]
     Active Substance: LENACAPAVIR SODIUM
     Indication: Product used for unknown indication
     Dosage: RIGHT THIGH (INJECTION)
     Route: 030
     Dates: start: 20250925
  2. YEZTUGO [Suspect]
     Active Substance: LENACAPAVIR SODIUM
     Dosage: LEFT THIGH (INJECTION)
     Route: 065
     Dates: start: 20250925
  3. YEZTUGO [Suspect]
     Active Substance: LENACAPAVIR SODIUM
     Indication: Product used for unknown indication
     Dosage: (TABLET FORMULATION)
     Route: 065

REACTIONS (3)
  - Muscle spasms [Recovered/Resolved]
  - Injection site reaction [Recovered/Resolved]
  - Incorrect route of product administration [Recovered/Resolved]

NARRATIVE: CASE EVENT DATE: 20250925
